FAERS Safety Report 23340691 (Version 7)
Quarter: 2025Q4

REPORT INFORMATION
  Report Type: Spontaneous
  Country: US (occurrence: US)
  Receive Date: 20231227
  Receipt Date: 20251223
  Transmission Date: 20260117
  Serious: Yes (Other)
  Sender: NOVARTIS
  Company Number: US-002147023-NVSC2023US274105

PATIENT
  Age: 57 Year
  Sex: Female

DRUGS (2)
  1. MEKINIST [Suspect]
     Active Substance: TRAMETINIB DIMETHYL SULFOXIDE
     Indication: Thyroid cancer
     Dosage: 2 MG, QD
     Route: 048
     Dates: start: 202312
  2. TAFINLAR [Suspect]
     Active Substance: DABRAFENIB MESYLATE
     Indication: Thyroid cancer
     Dosage: 150 MG, Q12H
     Route: 048
     Dates: start: 202312

REACTIONS (13)
  - Ophthalmoplegia [Unknown]
  - Pulmonary embolism [Unknown]
  - Chest pain [Unknown]
  - Dyspnoea [Unknown]
  - Swelling [Unknown]
  - Constipation [Unknown]
  - Oedema [Unknown]
  - Vision blurred [Unknown]
  - Arthralgia [Unknown]
  - Headache [Unknown]
  - Fatigue [Recovered/Resolved]
  - Dizziness [Unknown]
  - Visual impairment [Unknown]

NARRATIVE: CASE EVENT DATE: 20250905
